FAERS Safety Report 14434771 (Version 9)
Quarter: 2019Q1

REPORT INFORMATION
  Report Type: Spontaneous
  Country: PL (occurrence: PL)
  Receive Date: 20180125
  Receipt Date: 20190329
  Transmission Date: 20190417
  Serious: Yes (Death, Other)
  Sender: FDA-Public Use
  Company Number: PL-SUN PHARMACEUTICAL INDUSTRIES LTD-2018R1-160939

PATIENT
  Age: 61 Year
  Sex: Male

DRUGS (10)
  1. TEMOZOLOMIDE. [Suspect]
     Active Substance: TEMOZOLOMIDE
     Indication: MALIGNANT GLIOMA
     Dosage: 320 MG, 6 CYCLES OF TMZ, 5 CONSECUTIVE DAYS (28-DAY CYCLE)
     Route: 065
     Dates: start: 20150424, end: 20150917
  2. PASIREOTIDE. [Suspect]
     Active Substance: PASIREOTIDE
     Indication: PITUITARY TUMOUR BENIGN
     Dosage: 0.6 MILLIGRAM, BID
     Route: 058
     Dates: start: 20160201
  3. TEMOZOLOMIDE. [Suspect]
     Active Substance: TEMOZOLOMIDE
     Indication: PITUITARY TUMOUR BENIGN
     Dosage: 320 MG, 3 CYCLES OF TMZ (28-DAY CYCLE)
     Route: 065
     Dates: start: 20150917, end: 20151217
  4. KETOCONAZOLE. [Suspect]
     Active Substance: KETOCONAZOLE
     Indication: HYPERCORTICOIDISM
     Dosage: 300 MILLIGRAM, DAILY (300 TO 600MG PER DAY)
     Route: 065
     Dates: start: 2011
  5. KETOCONAZOLE. [Suspect]
     Active Substance: KETOCONAZOLE
     Dosage: 300 TO 600MG PER DAY, QD
     Route: 065
     Dates: start: 2011
  6. TEMOZOLOMIDE. [Suspect]
     Active Substance: TEMOZOLOMIDE
     Dosage: 320 MILLIGRAM (320 MG QD, FOR FIVE CONSECUTIVE DAYS (28 DAY CYCLE))
     Route: 048
     Dates: start: 2015, end: 201601
  7. TRIMETHOPRIM SULFAMETHOXAZOLE [Concomitant]
     Active Substance: SULFAMETHOXAZOLE\TRIMETHOPRIM
     Indication: PRODUCT USED FOR UNKNOWN INDICATION
     Dosage: UNK
     Route: 065
  8. TRIMETHOPRIM. [Concomitant]
     Active Substance: TRIMETHOPRIM
     Indication: PRODUCT USED FOR UNKNOWN INDICATION
     Dosage: UNK
     Route: 065
  9. ONDANSETRON [Concomitant]
     Active Substance: ONDANSETRON
     Indication: PRODUCT USED FOR UNKNOWN INDICATION
     Dosage: UNK
     Route: 065
  10. TEMOZOLOMIDE. [Suspect]
     Active Substance: TEMOZOLOMIDE
     Indication: PITUITARY TUMOUR BENIGN
     Dosage: UNK DAILY ((150-200 MG/M2) FOR FIVE CONSECUTIVE DAYS (28-DAY CYCLE)
     Route: 048
     Dates: start: 201504, end: 201512

REACTIONS (17)
  - Hepatotoxicity [Unknown]
  - Pupillary disorder [None]
  - Brain stem syndrome [Fatal]
  - Diabetes mellitus [Unknown]
  - IIIrd nerve paresis [Unknown]
  - Eyelid disorder [None]
  - Pituitary-dependent Cushing^s syndrome [Fatal]
  - Disease progression [Unknown]
  - Headache [Unknown]
  - Condition aggravated [Unknown]
  - Hepatic function abnormal [Unknown]
  - Off label use [Fatal]
  - Deafness [Unknown]
  - Nausea [Unknown]
  - Visual impairment [None]
  - Drug effect incomplete [Unknown]
  - IIIrd nerve paresis [None]

NARRATIVE: CASE EVENT DATE: 201511
